FAERS Safety Report 4842797-2 (Version None)
Quarter: 2005Q4

REPORT INFORMATION
  Report Type: 
  Country: None (occurrence: None)
  Receive Date: 20051125
  Receipt Date: 20051110
  Transmission Date: 20060501
  Serious: Yes (Other)
  Sender: FDA-Public Use
  Company Number: 2005153620

PATIENT
  Sex: Male

DRUGS (1)
  1. VIAGRA [Suspect]
     Dates: start: 19990601

REACTIONS (17)
  - BLINDNESS UNILATERAL [None]
  - EYE PAIN [None]
  - FACIAL PAIN [None]
  - FEELING HOT [None]
  - FLUSHING [None]
  - HAEMOGLOBIN DECREASED [None]
  - HEART RATE INCREASED [None]
  - HYPOAESTHESIA [None]
  - HYPOTENSION [None]
  - OCULAR HYPERAEMIA [None]
  - OPTIC ISCHAEMIC NEUROPATHY [None]
  - OPTIC NEURITIS [None]
  - PAPILLOEDEMA [None]
  - SENSORY LOSS [None]
  - TINNITUS [None]
  - TRIGEMINAL NERVE DISORDER [None]
  - VISUAL FIELD DEFECT [None]
